FAERS Safety Report 19273631 (Version 1)
Quarter: 2021Q2

REPORT INFORMATION
  Report Type: Spontaneous
  Country: US (occurrence: US)
  Receive Date: 20210519
  Receipt Date: 20210519
  Transmission Date: 20210717
  Serious: Yes (Hospitalization, Other)
  Sender: FDA-Public Use
  Company Number: US-ADAREPHARM-2021-US-000045

PATIENT
  Age: 65 Year
  Sex: Female
  Weight: 94.1 kg

DRUGS (3)
  1. PROPRANOLOL [Suspect]
     Active Substance: PROPRANOLOL HYDROCHLORIDE
     Indication: VARICES OESOPHAGEAL
  2. SPIRONOLACTONE. [Concomitant]
     Active Substance: SPIRONOLACTONE
     Indication: FLUID RETENTION
  3. FUROSEMIDE. [Concomitant]
     Active Substance: FUROSEMIDE
     Indication: FLUID RETENTION

REACTIONS (4)
  - Frequent bowel movements [Unknown]
  - Hepatorenal syndrome [Recovered/Resolved]
  - Acute kidney injury [Recovered/Resolved]
  - Product use in unapproved indication [Recovered/Resolved]
